FAERS Safety Report 6177637-5 (Version None)
Quarter: 2009Q2

REPORT INFORMATION
  Report Type: 
  Country: None (occurrence: None)
  Receive Date: 20090504
  Receipt Date: 20090421
  Transmission Date: 20091009
  Serious: Yes (Other)
  Sender: FDA-Public Use
  Company Number: US-CELGENEUS-163-21880-09041997

PATIENT

DRUGS (4)
  1. REVLIMID [Suspect]
     Indication: MULTIPLE MYELOMA
     Dosage: 15 OR 25MG
     Route: 048
  2. DEXAMETHASONE TAB [Suspect]
     Indication: MULTIPLE MYELOMA
     Route: 065
  3. DEXAMETHASONE TAB [Suspect]
     Route: 065
  4. PERI [Suspect]
     Indication: MULTIPLE MYELOMA
     Dosage: 50 OR 100MG
     Route: 065

REACTIONS (11)
  - ANAEMIA [None]
  - BLOOD CREATININE INCREASED [None]
  - DIARRHOEA [None]
  - FATIGUE [None]
  - HYPERCALCAEMIA [None]
  - HYPOPHOSPHATAEMIA [None]
  - NAUSEA [None]
  - NEUTROPENIA [None]
  - THROMBOCYTOPENIA [None]
  - UPPER RESPIRATORY TRACT INFECTION [None]
  - WEIGHT DECREASED [None]
